FAERS Safety Report 10418554 (Version 1)
Quarter: 2014Q2

REPORT INFORMATION
  Report Type: Spontaneous
  Country: US (occurrence: None)
  Receive Date: 20140609
  Receipt Date: 20140609
  Transmission Date: 20141212
  Serious: No
  Sender: FDA-Public Use
  Company Number: 2014TUS002276

PATIENT
  Sex: Male

DRUGS (2)
  1. BRINTELLIX [Suspect]
     Route: 048
     Dates: start: 20140318
  2. HYDROCODONE (HYDROCODONE) 3/17/14 TO UNK [Concomitant]

REACTIONS (2)
  - Nausea [None]
  - Vomiting [None]
